FAERS Safety Report 10434078 (Version 11)
Quarter: 2015Q2

REPORT INFORMATION
  Report Type: Report from Study
  Country: US (occurrence: US)
  Receive Date: 20140905
  Receipt Date: 20150522
  Transmission Date: 20150821
  Serious: Yes (Hospitalization, Other)
  Sender: FDA-Public Use
  Company Number: US-SA-2014SA093819

PATIENT
  Age: 29 Year
  Sex: Female

DRUGS (4)
  1. AUBAGIO [Suspect]
     Active Substance: TERIFLUNOMIDE
     Indication: MULTIPLE SCLEROSIS
     Dosage: FREQUENCY - DIE
     Route: 048
     Dates: start: 201406, end: 201501
  2. ZONEGRAN [Concomitant]
     Active Substance: ZONISAMIDE
     Indication: SEIZURE
  3. KEPPRA [Concomitant]
     Active Substance: LEVETIRACETAM
     Indication: SEIZURE
  4. LEMTRADA [Concomitant]
     Active Substance: ALEMTUZUMAB
     Indication: MULTIPLE SCLEROSIS
     Dosage: FREQUENCY: 5 DOSES
     Route: 042
     Dates: start: 20150518

REACTIONS (15)
  - Unevaluable event [Unknown]
  - Urinary incontinence [Not Recovered/Not Resolved]
  - Hypoaesthesia [Unknown]
  - Melanocytic naevus [Unknown]
  - Paraesthesia [Recovering/Resolving]
  - Gait disturbance [Unknown]
  - Faecal incontinence [Unknown]
  - Migraine [Unknown]
  - Multiple sclerosis relapse [Unknown]
  - Decreased appetite [Unknown]
  - Influenza like illness [Unknown]
  - Cough [Not Recovered/Not Resolved]
  - Anxiety [Unknown]
  - Pruritus [Unknown]
  - Dyspnoea [Recovered/Resolved]

NARRATIVE: CASE EVENT DATE: 20141010
